FAERS Safety Report 11540538 (Version 1)
Quarter: 2015Q3

REPORT INFORMATION
  Report Type: Spontaneous
  Country: US (occurrence: US)
  Receive Date: 20150923
  Receipt Date: 20150923
  Transmission Date: 20151125
  Serious: No
  Sender: FDA-Public Use
  Company Number: US-BEH-2015049409

PATIENT
  Age: 42 Year
  Sex: Female
  Weight: 148.3 kg

DRUGS (27)
  1. SELENIUM [Concomitant]
     Active Substance: SELENIUM
  2. HYDROCHLOROTHIAZIDE. [Concomitant]
     Active Substance: HYDROCHLOROTHIAZIDE
  3. RESTORIL [Concomitant]
     Active Substance: TEMAZEPAM
  4. VITAMIN A [Concomitant]
     Active Substance: VITAMIN A
  5. DICLOFENAC [Concomitant]
     Active Substance: DICLOFENAC
  6. CLONIDINE. [Concomitant]
     Active Substance: CLONIDINE
  7. FLUOXETINE [Concomitant]
     Active Substance: FLUOXETINE\FLUOXETINE HYDROCHLORIDE
  8. FLONASE [Concomitant]
     Active Substance: FLUTICASONE PROPIONATE
  9. LISINOPRIL. [Concomitant]
     Active Substance: LISINOPRIL
  10. OXYGEN. [Concomitant]
     Active Substance: OXYGEN
  11. IBUPROFEN. [Concomitant]
     Active Substance: IBUPROFEN
  12. VITAMIN C [Concomitant]
     Active Substance: ASCORBIC ACID
  13. DEXAMETHASONE. [Concomitant]
     Active Substance: DEXAMETHASONE
  14. SODIUM CHLORIDE. [Concomitant]
     Active Substance: SODIUM CHLORIDE
  15. KLONOPIN [Concomitant]
     Active Substance: CLONAZEPAM
  16. MAXAIR [Concomitant]
     Active Substance: PIRBUTEROL ACETATE
  17. SUPER B COMPLEX [Concomitant]
     Active Substance: CYANOCOBALAMIN\DEXPANTHENOL\NIACINAMIDE\PYRIDOXINE HYDROCHLORIDE\RIBOFLAVIN 5^-PHOSPHATE SODIUM\THIAMINE HYDROCHLORIDE\VITAMIN B COMPLEX
  18. FLOVENT [Concomitant]
     Active Substance: FLUTICASONE PROPIONATE
  19. PRIVIGEN [Suspect]
     Active Substance: HUMAN IMMUNOGLOBULIN G
     Indication: IMMUNODEFICIENCY COMMON VARIABLE
     Route: 042
     Dates: start: 20150226
  20. LEVAQUIN [Concomitant]
     Active Substance: LEVOFLOXACIN
  21. EPIPEN [Concomitant]
     Active Substance: EPINEPHRINE
  22. ASPIRIN. [Concomitant]
     Active Substance: ASPIRIN
  23. ZINC PICOLINATE [Concomitant]
     Active Substance: ZINC PICOLINATE
  24. VITAMIN B12 [Concomitant]
     Active Substance: CYANOCOBALAMIN
  25. DIPHENHYDRAMINE. [Concomitant]
     Active Substance: DIPHENHYDRAMINE
  26. MULTIVITAMIN [Concomitant]
     Active Substance: VITAMINS
  27. VITAMIN D3 [Concomitant]
     Active Substance: CHOLECALCIFEROL

REACTIONS (1)
  - Headache [Recovered/Resolved]

NARRATIVE: CASE EVENT DATE: 20150226
